FAERS Safety Report 22537585 (Version 2)
Quarter: 2023Q2

REPORT INFORMATION
  Report Type: Spontaneous
  Country: US (occurrence: US)
  Receive Date: 20230608
  Receipt Date: 20230609
  Transmission Date: 20230722
  Serious: No
  Sender: FDA-Public Use
  Company Number: US-PFIZER INC-202300211950

PATIENT
  Age: 45 Year
  Sex: Male
  Weight: 61.23 kg

DRUGS (6)
  1. AZITHROMYCIN [Suspect]
     Active Substance: AZITHROMYCIN
     Indication: Cough
     Dosage: 12.6 ML (12.6ML BYMOUTH THE FIRST DAY)
     Route: 048
     Dates: start: 20230530, end: 20230530
  2. AZITHROMYCIN [Suspect]
     Active Substance: AZITHROMYCIN
     Dosage: 6.2 ML, DAILY(6.2ML DAILY FOR 4 DAYS)
     Route: 048
     Dates: end: 20230603
  3. ROBITUSSIN COUGH AND CHEST CONGESTION DM [Concomitant]
     Active Substance: DEXTROMETHORPHAN HYDROBROMIDE\GUAIFENESIN
     Indication: Cough
     Dosage: 20 ML(20 ML 1 TO 2 DOSES A DAY)
  4. ROBITUSSIN COUGH AND CHEST CONGESTION DM [Concomitant]
     Active Substance: DEXTROMETHORPHAN HYDROBROMIDE\GUAIFENESIN
     Indication: Respiratory tract congestion
  5. PEPCID [Concomitant]
     Active Substance: FAMOTIDINE
     Dosage: 20 MG, 1X/DAY
  6. PHENYTOIN [Concomitant]
     Active Substance: PHENYTOIN
     Indication: Seizure
     Dosage: 3 ML, 2X/DAY

REACTIONS (2)
  - Abdominal pain upper [Not Recovered/Not Resolved]
  - Off label use [Unknown]

NARRATIVE: CASE EVENT DATE: 20230530
